FAERS Safety Report 14796335 (Version 2)
Quarter: 2018Q3

REPORT INFORMATION
  Report Type: Report from Study
  Country: US (occurrence: US)
  Receive Date: 20180423
  Receipt Date: 20180719
  Transmission Date: 20181010
  Serious: No
  Sender: FDA-Public Use
  Company Number: US-AMGEN-USASL2017189054

PATIENT
  Age: 69 Year
  Sex: Female
  Weight: 78.91 kg

DRUGS (16)
  1. ALENDRONATE [Concomitant]
     Active Substance: ALENDRONATE SODIUM
     Dosage: 70 MG, QWK
     Route: 048
  2. ASPIRIN. [Concomitant]
     Active Substance: ASPIRIN
     Dosage: 81 MG, QD (FOR 30DAYS)
     Route: 048
  3. DULOXETINE. [Concomitant]
     Active Substance: DULOXETINE
     Dosage: 60 MG, QD
     Route: 048
  4. LEVOTHYROXINE. [Concomitant]
     Active Substance: LEVOTHYROXINE
     Dosage: 25 MUG, QD
     Route: 048
  5. MIRALAX [Concomitant]
     Active Substance: POLYETHYLENE GLYCOL 3350
     Dosage: 17 G, QD
     Route: 048
  6. ALPRAZOLAM. [Concomitant]
     Active Substance: ALPRAZOLAM
     Dosage: 0.25 MG, UNK
     Route: 048
  7. AMLODIPINE [Concomitant]
     Active Substance: AMLODIPINE BESYLATE
     Dosage: 2.5 MG, QD
     Route: 048
     Dates: start: 20170627
  8. REPATHA [Suspect]
     Active Substance: EVOLOCUMAB
     Indication: BLOOD CHOLESTEROL ABNORMAL
     Dosage: 140 MG, Q2WK
     Route: 058
     Dates: start: 20170627
  9. METOPROLOL TARTRATE. [Concomitant]
     Active Substance: METOPROLOL TARTRATE
     Dosage: 25 MG (0.5 TABLET), QD
     Route: 048
  10. NITROGLYCERIN. [Concomitant]
     Active Substance: NITROGLYCERIN
     Dosage: 0.4 MG (FOR 30 DAYS), QD
     Route: 062
  11. CALCIUM [Concomitant]
     Active Substance: CALCIUM
     Dosage: 500 MG, BID
     Route: 048
  12. CARBIDOPA?LEVODOPA?B [Concomitant]
     Active Substance: CARBIDOPA\LEVODOPA
     Dosage: 25?100 MG, TID
     Route: 048
  13. VITAMIN D3 [Concomitant]
     Active Substance: CHOLECALCIFEROL
     Dosage: 5000 UNIT, QD
     Route: 048
  14. PROBIOTIC [Concomitant]
     Active Substance: PROBIOTICS NOS
     Dosage: 2 TABLETS, QD
     Route: 048
  15. REPATHA [Suspect]
     Active Substance: EVOLOCUMAB
     Indication: HYPERCHOLESTEROLAEMIA
     Dosage: 420 MG, QMO
     Route: 065
  16. MULTIVITAMIN [Concomitant]
     Active Substance: VITAMINS
     Dosage: UNK UNK, QD
     Route: 048

REACTIONS (2)
  - Localised infection [Not Recovered/Not Resolved]
  - Blood triglycerides increased [Unknown]

NARRATIVE: CASE EVENT DATE: 2017
